FAERS Safety Report 23731723 (Version 13)
Quarter: 2024Q4

REPORT INFORMATION
  Report Type: Report from Study
  Country: CO (occurrence: CO)
  Receive Date: 20240411
  Receipt Date: 20241227
  Transmission Date: 20250115
  Serious: Yes (Other)
  Sender: TAKEDA
  Company Number: CO-TAKEDA-2022TUS095622

PATIENT
  Age: 33 Year
  Sex: Female
  Weight: 93 kg

DRUGS (12)
  1. PARATHYROID HORMONE [Suspect]
     Active Substance: PARATHYROID HORMONE
     Indication: Hypoparathyroidism
     Dosage: 50 MICROGRAM, QD
  2. PARATHYROID HORMONE [Suspect]
     Active Substance: PARATHYROID HORMONE
     Dosage: 50 MICROGRAM, QD
  3. PARATHYROID HORMONE [Suspect]
     Active Substance: PARATHYROID HORMONE
     Dosage: 50 MICROGRAM, Q2WEEKS
  4. PARATHYROID HORMONE [Suspect]
     Active Substance: PARATHYROID HORMONE
     Dosage: 50 MILLIGRAM, QD
  5. PARATHYROID HORMONE [Suspect]
     Active Substance: PARATHYROID HORMONE
     Dosage: 50 MICROGRAM, QD
  6. LEVOTHYROXINE [Concomitant]
     Active Substance: LEVOTHYROXINE
     Dosage: 150 MICROGRAM, QD
  7. CALCIUM\VITAMIN D [Concomitant]
     Active Substance: CALCIUM\VITAMIN D
     Dosage: UNK UNK, BID
  8. CALCITRIOL [Concomitant]
     Active Substance: CALCITRIOL
     Dosage: UNK
  9. ESCITALOPRAM [Concomitant]
     Active Substance: ESCITALOPRAM OXALATE
     Dosage: UNK UNK, QD
  10. ESCITALOPRAM [Concomitant]
     Active Substance: ESCITALOPRAM OXALATE
     Dosage: 1 DOSAGE FORM, QD
  11. ORLISTAT [Concomitant]
     Active Substance: ORLISTAT
     Dosage: UNK UNK, QD
  12. ORLISTAT [Concomitant]
     Active Substance: ORLISTAT
     Dosage: 3 DOSAGE FORM, QD

REACTIONS (38)
  - Myalgia [Not Recovered/Not Resolved]
  - Blood calcium decreased [Not Recovered/Not Resolved]
  - Tremor [Not Recovered/Not Resolved]
  - Muscle spasms [Not Recovered/Not Resolved]
  - General physical health deterioration [Unknown]
  - Depressed mood [Not Recovered/Not Resolved]
  - Dizziness [Not Recovered/Not Resolved]
  - Tachycardia [Not Recovered/Not Resolved]
  - Muscular weakness [Not Recovered/Not Resolved]
  - Loss of personal independence in daily activities [Not Recovered/Not Resolved]
  - Weight decreased [Not Recovered/Not Resolved]
  - Pain [Recovering/Resolving]
  - Depressive symptom [Recovering/Resolving]
  - Malaise [Unknown]
  - Treatment noncompliance [Recovered/Resolved]
  - Abdominal pain [Not Recovered/Not Resolved]
  - Palpitations [Not Recovered/Not Resolved]
  - Asthenia [Not Recovered/Not Resolved]
  - Insomnia [Recovering/Resolving]
  - Abdominal pain upper [Not Recovered/Not Resolved]
  - Arthralgia [Not Recovered/Not Resolved]
  - Diarrhoea [Recovered/Resolved]
  - Vomiting [Recovered/Resolved]
  - Product availability issue [Recovered/Resolved]
  - Product distribution issue [Unknown]
  - Product dose omission issue [Unknown]
  - Product prescribing error [Not Recovered/Not Resolved]
  - Inappropriate schedule of product administration [Unknown]
  - Product use issue [Recovered/Resolved]
  - Product storage error [Unknown]
  - Expired product administered [Unknown]
  - Musculoskeletal stiffness [Not Recovered/Not Resolved]
  - Stress at work [Not Recovered/Not Resolved]
  - Fatigue [Not Recovered/Not Resolved]
  - Chest pain [Not Recovered/Not Resolved]
  - Hypoaesthesia [Not Recovered/Not Resolved]
  - Paraesthesia [Not Recovered/Not Resolved]
  - Headache [Not Recovered/Not Resolved]

NARRATIVE: CASE EVENT DATE: 20221128
